FAERS Safety Report 19735989 (Version 3)
Quarter: 2021Q4

REPORT INFORMATION
  Report Type: Report from Study
  Country: IL (occurrence: IL)
  Receive Date: 20210823
  Receipt Date: 20211014
  Transmission Date: 20220303
  Serious: Yes (Death, Hospitalization)
  Sender: FDA-Public Use
  Company Number: NVSC2021IL177111

PATIENT
  Age: 74 Year
  Sex: Female

DRUGS (1)
  1. PIQRAY [Suspect]
     Active Substance: ALPELISIB
     Indication: Breast cancer
     Dosage: 200 MG, QD
     Route: 048
     Dates: start: 20210720

REACTIONS (5)
  - Death [Fatal]
  - Blood sodium decreased [Recovering/Resolving]
  - Blood glucose increased [Recovering/Resolving]
  - Asthenia [Not Recovered/Not Resolved]
  - Fatigue [Not Recovered/Not Resolved]

NARRATIVE: CASE EVENT DATE: 20210808
